FAERS Safety Report 16929101 (Version 2)
Quarter: 2020Q3

REPORT INFORMATION
  Report Type: Spontaneous
  Country: CN (occurrence: CN)
  Receive Date: 20191017
  Receipt Date: 20200807
  Transmission Date: 20201102
  Serious: Yes (Hospitalization)
  Sender: FDA-Public Use
  Company Number: NVSC2019CN001353

PATIENT
  Age: 28 Year
  Sex: Female

DRUGS (2)
  1. METHOTREXATE. [Suspect]
     Active Substance: METHOTREXATE
     Dosage: 50 MG
     Route: 030
  2. METHOTREXATE. [Suspect]
     Active Substance: METHOTREXATE
     Indication: ECTOPIC PREGNANCY
     Dosage: 80 MG
     Route: 030

REACTIONS (9)
  - Skin ulcer [Unknown]
  - Pruritus [Recovering/Resolving]
  - Mouth ulceration [Unknown]
  - Vaginal discharge [Recovering/Resolving]
  - Vulval oedema [Recovering/Resolving]
  - Vulvovaginitis trichomonal [Recovering/Resolving]
  - Purulence [Unknown]
  - Product use in unapproved indication [Unknown]
  - Maternal exposure during pregnancy [Unknown]
